FAERS Safety Report 9320287 (Version 1)
Quarter: 2013Q2

REPORT INFORMATION
  Report Type: Report from Study
  Country: US (occurrence: US)
  Receive Date: 20130530
  Receipt Date: 20130530
  Transmission Date: 20140414
  Serious: Yes (Other)
  Sender: FDA-Public Use
  Company Number: US-US-EMD SERONO, INC.-7213516

PATIENT
  Sex: Male

DRUGS (2)
  1. REBIF [Suspect]
     Indication: PRODUCT USED FOR UNKNOWN INDICATION
     Route: 058
     Dates: start: 20130103, end: 201304
  2. REBIF [Suspect]
     Route: 058
     Dates: start: 201305, end: 201305

REACTIONS (3)
  - Pneumonia [Recovered/Resolved]
  - Feeling abnormal [Unknown]
  - Rash [Unknown]
